FAERS Safety Report 8422225-0 (Version None)
Quarter: 2012Q2

REPORT INFORMATION
  Report Type: 
  Country: None (occurrence: None)
  Receive Date: 20120605
  Receipt Date: 20120531
  Transmission Date: 20120825
  Serious: Yes (Other)
  Sender: FDA-Public Use
  Company Number: GER/UKI/11/0022484

PATIENT
  Age: 70 Year
  Sex: Female
  Weight: 77.5 kg

DRUGS (3)
  1. CANDESARTAN CILEXETIL [Concomitant]
  2. BENDROFLUMETHIAZIDE (BENDROFLUMETHIAZIDE) [Concomitant]
  3. AMLODIPINE BESYLATE [Suspect]
     Indication: ESSENTIAL HYPERTENSION
     Dosage: 10 MG, ORAL
     Route: 048
     Dates: start: 20051221, end: 20111111

REACTIONS (5)
  - CELLULITIS [None]
  - OEDEMA PERIPHERAL [None]
  - DERMATITIS [None]
  - DERMATOSIS [None]
  - SKIN ULCER [None]
